FAERS Safety Report 10838324 (Version 1)
Quarter: 2015Q1

REPORT INFORMATION
  Report Type: Report from Study
  Country: US (occurrence: US)
  Receive Date: 20150219
  Receipt Date: 20150219
  Transmission Date: 20150721
  Serious: No
  Sender: FDA-Public Use
  Company Number: US-ABBVIE-14P-163-1227518-00

PATIENT
  Age: 51 Year
  Sex: Female
  Weight: 66.28 kg

DRUGS (6)
  1. HUMIRA [Suspect]
     Active Substance: ADALIMUMAB
     Indication: RHEUMATOID ARTHRITIS
     Dates: start: 2007, end: 201308
  2. HUMIRA [Suspect]
     Active Substance: ADALIMUMAB
     Dates: start: 2013, end: 201309
  3. ZANAFLEX [Concomitant]
     Active Substance: TIZANIDINE HYDROCHLORIDE
     Indication: MUSCLE RELAXANT THERAPY
  4. TOPAMAX [Concomitant]
     Active Substance: TOPIRAMATE
     Indication: MIGRAINE
  5. ZOLOFT [Concomitant]
     Active Substance: SERTRALINE HYDROCHLORIDE
     Indication: DEPRESSION
  6. STADOL [Concomitant]
     Active Substance: BUTORPHANOL TARTRATE
     Indication: MIGRAINE

REACTIONS (7)
  - Arthropod bite [Recovered/Resolved]
  - Pruritus [Recovered/Resolved]
  - Bronchitis [Recovered/Resolved]
  - Rash macular [Recovered/Resolved]
  - Arthropod bite [Recovered/Resolved]
  - Skin warm [Recovered/Resolved]
  - Bronchitis [Recovered/Resolved]

NARRATIVE: CASE EVENT DATE: 201308
